FAERS Safety Report 11779621 (Version 2)
Quarter: 2016Q1

REPORT INFORMATION
  Report Type: Spontaneous
  Country: FR (occurrence: FR)
  Receive Date: 20151125
  Receipt Date: 20160316
  Transmission Date: 20160525
  Serious: Yes (Death)
  Sender: FDA-Public Use
  Company Number: FR-TEVA-612330ISR

PATIENT
  Age: 84 Year
  Sex: Male

DRUGS (1)
  1. IPRATROPIUM 0.5 MG/2ML [Suspect]
     Active Substance: IPRATROPIUM

REACTIONS (1)
  - Death [Fatal]
